FAERS Safety Report 8984664 (Version 2)
Quarter: 2013Q1

REPORT INFORMATION
  Report Type: Spontaneous
  Country: GB (occurrence: GB)
  Receive Date: 20121225
  Receipt Date: 20130102
  Transmission Date: 20140127
  Serious: Yes (Death, Hospitalization)
  Sender: FDA-Public Use
  Company Number: GB-ABBOTT-12P-167-1025113-00

PATIENT
  Age: 58 Year
  Sex: Male

DRUGS (19)
  1. KALETRA [Suspect]
     Indication: PRODUCT USED FOR UNKNOWN INDICATION
     Dates: start: 20121107
  2. KALETRA [Suspect]
     Dates: start: 20121019
  3. RITONAVIR [Suspect]
     Indication: PRODUCT USED FOR UNKNOWN INDICATION
     Dates: start: 20120816, end: 20120917
  4. KIVEXA [Suspect]
     Indication: PRODUCT USED FOR UNKNOWN INDICATION
     Dates: start: 20120816, end: 20120913
  5. DARUNAVIR [Suspect]
     Indication: PRODUCT USED FOR UNKNOWN INDICATION
     Dates: start: 20120816, end: 20120917
  6. RALTEGRAVIR [Suspect]
     Indication: PRODUCT USED FOR UNKNOWN INDICATION
     Dates: start: 20120816, end: 20120917
  7. CO-TRIMOXAZOLE [Suspect]
     Indication: PRODUCT USED FOR UNKNOWN INDICATION
     Dates: start: 20120803, end: 20120917
  8. DAPSONE [Suspect]
     Indication: PRODUCT USED FOR UNKNOWN INDICATION
     Dates: start: 20120830, end: 20120910
  9. ABACAVIR SULFATE [Suspect]
     Indication: PRODUCT USED FOR UNKNOWN INDICATION
     Dates: start: 20121107
  10. PREDNISOLONE [Concomitant]
     Indication: PRODUCT USED FOR UNKNOWN INDICATION
  11. NIFEDIPINE [Concomitant]
     Dates: start: 20120928
  12. BISOPROLOL [Concomitant]
     Indication: PRODUCT USED FOR UNKNOWN INDICATION
  13. RANITIDINE HYDROCHLORIDE [Concomitant]
     Indication: PRODUCT USED FOR UNKNOWN INDICATION
  14. ATORVASTATIN CALCIUM [Concomitant]
     Indication: PRODUCT USED FOR UNKNOWN INDICATION
     Dates: start: 20120925
  15. CHLORPHENIRAMINE MALEATE [Concomitant]
     Indication: PRODUCT USED FOR UNKNOWN INDICATION
  16. CLARITHROMYCIN [Concomitant]
     Indication: PRODUCT USED FOR UNKNOWN INDICATION
  17. AZITHROMYCIN [Concomitant]
     Indication: PRODUCT USED FOR UNKNOWN INDICATION
  18. FLUCONAZOLE [Concomitant]
     Indication: PRODUCT USED FOR UNKNOWN INDICATION
     Dates: start: 20121011
  19. ACYCLOVIR [Concomitant]
     Indication: PRODUCT USED FOR UNKNOWN INDICATION
     Dates: start: 20121011

REACTIONS (32)
  - Drug reaction with eosinophilia and systemic symptoms [Fatal]
  - Toxic epidermal necrolysis [Unknown]
  - HIV associated nephropathy [Fatal]
  - Renal impairment [Fatal]
  - Pruritus generalised [Fatal]
  - Rash maculo-papular [Fatal]
  - Nausea [Fatal]
  - Diarrhoea [Fatal]
  - Oedema [Fatal]
  - Induration [Fatal]
  - Hypotension [Fatal]
  - Tachycardia [Fatal]
  - Liver function test abnormal [Fatal]
  - Alanine aminotransferase abnormal [Fatal]
  - Blood alkaline phosphatase abnormal [Fatal]
  - Rash [Fatal]
  - White blood cell count increased [Fatal]
  - Eosinophil count increased [Fatal]
  - Lymphocyte count increased [Fatal]
  - Drug interaction [Fatal]
  - Hepatic function abnormal [Fatal]
  - Pyrexia [Fatal]
  - Coronary artery disease [Fatal]
  - Skin exfoliation [Fatal]
  - Dermatitis [Fatal]
  - Platelet count decreased [Fatal]
  - Thrombocytopenia [Fatal]
  - Malaise [Fatal]
  - Asthenia [Fatal]
  - Metabolic acidosis [Fatal]
  - Abdominal pain [Fatal]
  - C-reactive protein increased [Fatal]
